FAERS Safety Report 4752869-9 (Version None)
Quarter: 2005Q3

REPORT INFORMATION
  Report Type: 
  Country: None (occurrence: None)
  Receive Date: 20050714
  Receipt Date: 20040526
  Transmission Date: 20060218
  Serious: Yes (Hospitalization)
  Sender: FDA-Public Use
  Company Number: 200412264US

PATIENT
  Age: 42 Year
  Sex: Female
  Weight: 74 kg

DRUGS (8)
  1. TAXOTERE [Suspect]
     Indication: BREAST CANCER RECURRENT
     Dosage: 75 (135MG TOTAL) MG/M**2 ONCE
     Dates: start: 20040315, end: 20040315
  2. XELODA [Concomitant]
  3. MORPHINE SULFATE [Concomitant]
  4. WARFARIN SODIUM [Concomitant]
  5. DOCUSATE SODIUM (COLACE) [Concomitant]
  6. SENNA [Concomitant]
  7. ONDANSETRON HYDROCHLORIDE (ZOFRAN) [Concomitant]
  8. MORPHINE [Concomitant]

REACTIONS (8)
  - ABDOMINAL PAIN [None]
  - ALANINE AMINOTRANSFERASE INCREASED [None]
  - ASPARTATE AMINOTRANSFERASE INCREASED [None]
  - BLOOD ALKALINE PHOSPHATASE INCREASED [None]
  - BLOOD BILIRUBIN INCREASED [None]
  - LIVER FUNCTION TEST ABNORMAL [None]
  - NEUTROPENIA [None]
  - WHITE BLOOD CELL COUNT DECREASED [None]
